FAERS Safety Report 5697472-1 (Version None)
Quarter: 2008Q2

REPORT INFORMATION
  Report Type: 
  Country: None (occurrence: None)
  Receive Date: 20080407
  Receipt Date: 20080320
  Transmission Date: 20081010
  Serious: Yes (Other)
  Sender: FDA-Public Use
  Company Number: PHHY2008BR03682

PATIENT
  Sex: Male

DRUGS (1)
  1. ZOMETA [Suspect]
     Indication: OSTEITIS DEFORMANS
     Dosage: ONCE EVERY 28 DAYS
     Route: 042
     Dates: start: 20080317

REACTIONS (6)
  - BONE PAIN [None]
  - DENGUE FEVER [None]
  - FEELING COLD [None]
  - HEADACHE [None]
  - PAIN IN EXTREMITY [None]
  - PYREXIA [None]
